FAERS Safety Report 10055826 (Version 3)
Quarter: 2014Q2

REPORT INFORMATION
  Report Type: Other
  Country: GB (occurrence: GB)
  Receive Date: 20140403
  Receipt Date: 20140527
  Transmission Date: 20141212
  Serious: Yes (Other)
  Sender: FDA-Public Use
  Company Number: GB-PERRIGO-14GB003392

PATIENT
  Sex: Female

DRUGS (5)
  1. IBUPROFEN 16028/0027 200 MG [Suspect]
     Indication: SURGERY
     Dosage: UNK
     Route: 065
  2. APIXABAN [Suspect]
     Indication: JOINT ARTHROPLASTY
     Dosage: UNK
     Route: 065
  3. METFORMIN [Suspect]
     Indication: DIABETES MELLITUS
     Dosage: UNK
     Route: 065
  4. FLUCLOXACILLIN [Suspect]
     Indication: PRODUCT USED FOR UNKNOWN INDICATION
     Dosage: UNK
     Route: 065
  5. GENTAMICIN [Suspect]
     Indication: PRODUCT USED FOR UNKNOWN INDICATION
     Dosage: UNK
     Route: 065

REACTIONS (3)
  - Renal failure [Unknown]
  - Drug interaction [Unknown]
  - Blood pressure decreased [Unknown]
